FAERS Safety Report 15296796 (Version 5)
Quarter: 2018Q4

REPORT INFORMATION
  Report Type: Report from Study
  Country: US (occurrence: US)
  Receive Date: 20180820
  Receipt Date: 20181220
  Transmission Date: 20190204
  Serious: Yes (Hospitalization, Other)
  Sender: FDA-Public Use
  Company Number: US-JNJFOC-20180818636

PATIENT
  Age: 84 Year
  Sex: Female

DRUGS (13)
  1. IMBRUVICA [Suspect]
     Active Substance: IBRUTINIB
     Indication: NON-HODGKIN^S LYMPHOMA
     Dosage: 420 MG, QD
     Route: 048
     Dates: start: 20180522, end: 2018
  2. RITUXAN [Suspect]
     Active Substance: RITUXIMAB
     Indication: PRODUCT USED FOR UNKNOWN INDICATION
     Route: 042
  3. ESOMEPRAZOLE MAGNESIUM. [Concomitant]
     Active Substance: ESOMEPRAZOLE MAGNESIUM
  4. CALCIUM PHOSPHATE W/COLECALCIFEROL [Concomitant]
  5. IMBRUVICA [Suspect]
     Active Substance: IBRUTINIB
     Indication: NON-HODGKIN^S LYMPHOMA
     Route: 048
     Dates: start: 20180912
  6. IMBRUVICA [Suspect]
     Active Substance: IBRUTINIB
     Indication: NON-HODGKIN^S LYMPHOMA
     Dosage: 420 MG, QD
     Route: 048
     Dates: start: 20180523
  7. ASPIR LOW [Concomitant]
     Active Substance: ASPIRIN
  8. BENICAR [Concomitant]
     Active Substance: OLMESARTAN MEDOXOMIL
  9. ELIQUIS [Concomitant]
     Active Substance: APIXABAN
  10. AMLODIPINE W/HYDROCHLOROTHIAZIDE/OLMESARTAN M [Concomitant]
     Active Substance: AMLODIPINE BESYLATE\HYDROCHLOROTHIAZIDE\OLMESARTAN MEDOXOMIL
  11. MULTIVITAMINS [Concomitant]
     Active Substance: VITAMINS
  12. CALCIUM [Concomitant]
     Active Substance: CALCIUM
  13. BYSTOLIC [Concomitant]
     Active Substance: NEBIVOLOL HYDROCHLORIDE

REACTIONS (12)
  - Fatigue [Unknown]
  - Pneumonia [Not Recovered/Not Resolved]
  - Cardiac disorder [Not Recovered/Not Resolved]
  - Blood pressure decreased [Unknown]
  - Adverse event [Unknown]
  - Gait disturbance [Unknown]
  - Tremor [Unknown]
  - Pyrexia [Unknown]
  - Immune system disorder [Unknown]
  - Asthenia [Unknown]
  - Chills [Unknown]
  - Heart rate increased [Unknown]

NARRATIVE: CASE EVENT DATE: 20180808
